FAERS Safety Report 10739694 (Version 1)
Quarter: 2015Q1

REPORT INFORMATION
  Report Type: Spontaneous
  Country: US (occurrence: US)
  Receive Date: 20150127
  Receipt Date: 20150127
  Transmission Date: 20150721
  Serious: Yes (Death)
  Sender: FDA-Public Use
  Company Number: US-009507513-1501USA007550

PATIENT
  Age: 49 Year
  Sex: Male

DRUGS (8)
  1. PRINIVIL [Suspect]
     Active Substance: LISINOPRIL
     Route: 048
  2. HYDROCHLOROTHIAZIDE (+) METOPROLOL SUCCINATE [Suspect]
     Active Substance: HYDROCHLOROTHIAZIDE\METOPROLOL SUCCINATE
     Route: 048
  3. PAROXETINE [Suspect]
     Active Substance: PAROXETINE\PAROXETINE HYDROCHLORIDE
     Route: 048
  4. ALCOHOL. [Suspect]
     Active Substance: ALCOHOL
     Route: 048
  5. DISULFIRAM. [Suspect]
     Active Substance: DISULFIRAM
     Route: 048
  6. SALICYLIC ACID. [Suspect]
     Active Substance: SALICYLIC ACID
     Route: 048
  7. INSULIN [Suspect]
     Active Substance: INSULIN NOS
     Route: 048
  8. ELAVIL [Suspect]
     Active Substance: AMITRIPTYLINE HYDROCHLORIDE
     Route: 048

REACTIONS (2)
  - Toxicity to various agents [Fatal]
  - Drug administration error [Fatal]
